FAERS Safety Report 4722331-8 (Version None)
Quarter: 2005Q3

REPORT INFORMATION
  Report Type: 
  Country: None (occurrence: None)
  Receive Date: 20050722
  Receipt Date: 20050225
  Transmission Date: 20060218
  Serious: No
  Sender: FDA-Public Use
  Company Number: US-GLAXOSMITHKLINE-A0547359A

PATIENT
  Age: 57 Year
  Sex: Female

DRUGS (5)
  1. AVANDIA [Suspect]
     Dosage: 4MG TWICE PER DAY
     Route: 048
  2. HYZAAR [Concomitant]
  3. TENORMIN [Concomitant]
  4. SOMA [Concomitant]
  5. AMARYL [Concomitant]

REACTIONS (1)
  - ABDOMINAL PAIN UPPER [None]
